FAERS Safety Report 23247922 (Version 1)
Quarter: 2023Q4

REPORT INFORMATION
  Report Type: Spontaneous
  Country: US (occurrence: US)
  Receive Date: 20231130
  Receipt Date: 20231130
  Transmission Date: 20240109
  Serious: Yes (Other)
  Sender: FDA-Public Use
  Company Number: US-ZO SKIN HEALTH-2023ZOS00007

PATIENT
  Age: 77 Year
  Sex: Female
  Weight: 152 kg

DRUGS (2)
  1. HYDROQUINONE [Suspect]
     Active Substance: HYDROQUINONE
     Indication: Application site discolouration
     Dosage: 1 PUMP PER APPLICATION TWICE A DAY (DAY/NIGHT) TO FACE
     Route: 061
     Dates: start: 20231010
  2. HYDROQUINONE [Suspect]
     Active Substance: HYDROQUINONE
     Indication: Application site discolouration
     Dosage: 1 PUMP PER APPLICATION TWICE A DAY (DAY/NIGHT) TO FACE
     Route: 061
     Dates: start: 20231010

REACTIONS (2)
  - Hypersensitivity [Recovered/Resolved]
  - Urticaria [Recovered/Resolved]

NARRATIVE: CASE EVENT DATE: 20231014
